FAERS Safety Report 10308233 (Version 1)
Quarter: 2014Q3

REPORT INFORMATION
  Report Type: Spontaneous
  Country: US (occurrence: US)
  Receive Date: 20140716
  Receipt Date: 20140716
  Transmission Date: 20150326
  Serious: No
  Sender: FDA-Public Use
  Company Number: US-BAYER-2014-106958

PATIENT
  Sex: Female

DRUGS (1)
  1. CLIMARA PRO [Suspect]
     Active Substance: ESTRADIOL\LEVONORGESTREL

REACTIONS (2)
  - Application site irritation [None]
  - Product quality issue [None]
